FAERS Safety Report 11418354 (Version 1)
Quarter: 2015Q3

REPORT INFORMATION
  Report Type: Spontaneous
  Country: IN (occurrence: IN)
  Receive Date: 20150826
  Receipt Date: 20150826
  Transmission Date: 20151125
  Serious: Yes (Hospitalization, Other)
  Sender: FDA-Public Use
  Company Number: IN-ASTRAZENECA-2015SE80690

PATIENT
  Age: 73 Year
  Sex: Male
  Weight: 59.8 kg

DRUGS (4)
  1. OLWAY H [Concomitant]
     Indication: HYPERTENSION
     Dosage: 40 MG+6.25 MG, UNKNOWN
  2. STETOR [Concomitant]
     Indication: DYSLIPIDAEMIA
  3. ONGLYZA [Suspect]
     Active Substance: SAXAGLIPTIN HYDROCHLORIDE
     Route: 048
     Dates: start: 20150707, end: 20150805
  4. STAMLO [Concomitant]
     Active Substance: AMLODIPINE BESYLATE
     Indication: HYPERTENSION

REACTIONS (2)
  - Diarrhoea [Unknown]
  - Vomiting [Unknown]
